FAERS Safety Report 22075292 (Version 1)
Quarter: 2023Q1

REPORT INFORMATION
  Report Type: Spontaneous
  Country: US (occurrence: US)
  Receive Date: 20230308
  Receipt Date: 20230308
  Transmission Date: 20230418
  Serious: Yes (Other)
  Sender: FDA-Public Use
  Company Number: US-JAZZ PHARMACEUTICALS-2023-US-005061

PATIENT
  Age: 67 Year
  Sex: Female

DRUGS (1)
  1. VYXEOS [Suspect]
     Active Substance: CYTARABINE\DAUNORUBICIN
     Indication: Myeloproliferative neoplasm
     Dosage: DAUNORUBICIN 44 MG/CYTARABINE 100 MG/M? IV ON DAYS 1, 3 AND 5
     Route: 042

REACTIONS (2)
  - Febrile neutropenia [Unknown]
  - Gastrointestinal toxicity [Unknown]
